FAERS Safety Report 8120047-1 (Version None)
Quarter: 2012Q1

REPORT INFORMATION
  Report Type: 
  Country: None (occurrence: None)
  Receive Date: 20120207
  Receipt Date: 20120131
  Transmission Date: 20120608
  Serious: Yes (Hospitalization)
  Sender: FDA-Public Use
  Company Number: DE-B.I. PHARMACEUTICALS,INC./RIDGEFIELD-2012-DE-00338DE

PATIENT
  Sex: Male

DRUGS (5)
  1. PRAMIPEXOLE DIHYDROCHLORIDE [Suspect]
     Indication: PARKINSON'S DISEASE
     Dosage: 0.36 MG
     Dates: start: 20110101, end: 20111206
  2. LEVODOPA RETARD [Concomitant]
     Dosage: 1 ANZ
     Dates: start: 20110101, end: 20111206
  3. LEVODOPA [Concomitant]
     Dosage: 1.5 ANZ
     Dates: start: 20110101, end: 20111206
  4. LEVODOPA RETARD [Concomitant]
     Dosage: 1 ANZ
     Dates: start: 20111207
  5. PRAMIPEXOLE DIHYDROCHLORIDE [Suspect]
     Indication: RESTLESS LEGS SYNDROME
     Dosage: 1.05 MG
     Dates: start: 20111207

REACTIONS (2)
  - ERYTHEMA NODOSUM [None]
  - DRUG EFFECT DECREASED [None]
